FAERS Safety Report 5908437-6 (Version None)
Quarter: 2008Q3

REPORT INFORMATION
  Report Type: 
  Country: None (occurrence: None)
  Receive Date: 20080930
  Receipt Date: 20080915
  Transmission Date: 20090109
  Serious: Yes (Other)
  Sender: FDA-Public Use
  Company Number: 2008S1014095

PATIENT
  Age: 92 Year
  Sex: Female
  Weight: 69.8539 kg

DRUGS (22)
  1. FENTANYL TRANSDERMAL SYSTEM [Suspect]
     Indication: BACK PAIN
     Dosage: 100 UG;EVERY HOUR; TRANSDERMAL
     Route: 062
     Dates: start: 20061006
  2. FENTANYL TRANSDERMAL SYSTEM [Suspect]
  3. FENTANYL TRANSDERMAL SYSTEM [Suspect]
  4. COREG [Concomitant]
  5. ISOSORBIDE [Concomitant]
  6. PLAVIX [Concomitant]
  7. HYDROCHLOROTHIAZIDE [Concomitant]
  8. NITROGLYCERIN [Concomitant]
  9. ATORVASTATIN CALCIUM [Concomitant]
  10. LIDODERM [Concomitant]
  11. PERCOCET [Concomitant]
  12. MECLIZINE [Concomitant]
  13. LEVOTHYROXINE SODIUM [Concomitant]
  14. GABAPENTIN [Concomitant]
  15. GLUCOSAMINE + CHONDROITIN [Concomitant]
  16. VITAMIN B-12 [Concomitant]
  17. POTASSIUM CHLORIDE [Concomitant]
  18. DAILY VITAMINS [Concomitant]
  19. CALTRATE [Concomitant]
  20. STOOL SOFTENER [Concomitant]
  21. ASCORBIC ACID [Concomitant]
  22. CRANBERRY /01512301/ [Concomitant]

REACTIONS (3)
  - DRUG WITHDRAWAL SYNDROME [None]
  - MUSCLE TWITCHING [None]
  - TREMOR [None]
